FAERS Safety Report 12664892 (Version 1)
Quarter: 2016Q3

REPORT INFORMATION
  Report Type: Spontaneous
  Country: US (occurrence: US)
  Receive Date: 20160818
  Receipt Date: 20160818
  Transmission Date: 20161109
  Serious: No
  Sender: FDA-Public Use
  Company Number: US-FRI-1000081300

PATIENT
  Age: 16 Year
  Sex: Male

DRUGS (9)
  1. PREVACID [Suspect]
     Active Substance: LANSOPRAZOLE
     Indication: NAUSEA
     Dosage: 30 MG
     Route: 048
     Dates: start: 20151123, end: 20151124
  2. CYPROHEPTADINE. [Suspect]
     Active Substance: CYPROHEPTADINE
     Dosage: 2 MG
     Route: 048
     Dates: start: 20151123
  3. FLORINEF ACETATE [Concomitant]
     Active Substance: FLUDROCORTISONE ACETATE
     Indication: HYPERNATRAEMIA
     Dosage: 0.1 MG
     Route: 048
     Dates: start: 2013
  4. CELEXA [Suspect]
     Active Substance: CITALOPRAM HYDROBROMIDE
     Indication: ANXIETY
  5. FLORINEF ACETATE [Concomitant]
     Active Substance: FLUDROCORTISONE ACETATE
     Indication: FLUID RETENTION
  6. ATENOLOL. [Concomitant]
     Active Substance: ATENOLOL
     Indication: HEART RATE
     Dosage: 25 MG
     Route: 048
     Dates: start: 2013
  7. CYPROHEPTADINE. [Suspect]
     Active Substance: CYPROHEPTADINE
     Indication: NAUSEA
     Dosage: 4 MG
     Route: 048
     Dates: start: 20151122, end: 20151122
  8. CELEXA [Suspect]
     Active Substance: CITALOPRAM HYDROBROMIDE
     Indication: DEPRESSION
     Dosage: 30 MG
     Route: 048
     Dates: start: 2012
  9. ZOFRAN [Concomitant]
     Active Substance: ONDANSETRON HYDROCHLORIDE
     Indication: NAUSEA
     Route: 048
     Dates: start: 201410

REACTIONS (6)
  - Drug administered to patient of inappropriate age [Not Recovered/Not Resolved]
  - Tremor [Recovered/Resolved]
  - Blood pressure decreased [Recovered/Resolved]
  - Dizziness [Recovered/Resolved]
  - Nausea [Not Recovered/Not Resolved]
  - Drug interaction [Recovered/Resolved]

NARRATIVE: CASE EVENT DATE: 2012
